FAERS Safety Report 4938478-7 (Version None)
Quarter: 2006Q1

REPORT INFORMATION
  Report Type: 
  Country: None (occurrence: None)
  Receive Date: 20060302
  Receipt Date: 20060207
  Transmission Date: 20060701
  Serious: Yes (Hospitalization)
  Sender: FDA-Public Use
  Company Number: ES200602001259

PATIENT
  Age: 84 Year
  Sex: Female

DRUGS (4)
  1. FORTEO [Suspect]
     Indication: OSTEOPOROSIS
     Dosage: 20 UG, DAILY (1/D), SUBCUTANEOUS
     Route: 058
     Dates: start: 20051218, end: 20060202
  2. TRADONAL (TRAMADOL HYDROCHLORIDE) [Concomitant]
  3. HIDROFEROL (CALCIFEDIOL) [Concomitant]
  4. HIGROTONA (CHLORTALIDONE) [Concomitant]

REACTIONS (1)
  - PULMONARY THROMBOSIS [None]
